FAERS Safety Report 10615791 (Version 2)
Quarter: 2014Q4

REPORT INFORMATION
  Report Type: Spontaneous
  Country: US (occurrence: US)
  Receive Date: 20141201
  Receipt Date: 20141212
  Transmission Date: 20150529
  Serious: Yes (Hospitalization)
  Sender: FDA-Public Use
  Company Number: US-JNJFOC-20141117060

PATIENT
  Age: 65 Year
  Sex: Male

DRUGS (7)
  1. LOSARTAN [Concomitant]
     Active Substance: LOSARTAN
     Route: 065
  2. BABY ASPIRIN [Suspect]
     Active Substance: ASPIRIN
     Indication: ATRIAL FIBRILLATION
     Route: 065
  3. XARELTO [Suspect]
     Active Substance: RIVAROXABAN
     Indication: CEREBROVASCULAR ACCIDENT PROPHYLAXIS
     Dosage: STOP DATE: NOV-2014
     Route: 048
     Dates: start: 201311, end: 2014
  4. XARELTO [Suspect]
     Active Substance: RIVAROXABAN
     Indication: ATRIAL FIBRILLATION
     Dosage: STOP DATE: NOV-2014
     Route: 048
     Dates: start: 201311, end: 2014
  5. AMIODARONE [Concomitant]
     Active Substance: AMIODARONE
     Route: 065
  6. CRESTOR [Concomitant]
     Active Substance: ROSUVASTATIN CALCIUM
     Route: 065
  7. LOSARTAN [Concomitant]
     Active Substance: LOSARTAN
     Route: 065

REACTIONS (2)
  - Haemorrhage intracranial [Recovered/Resolved]
  - Blood pressure increased [Unknown]

NARRATIVE: CASE EVENT DATE: 201411
